FAERS Safety Report 10404922 (Version 2)
Quarter: 2014Q3

REPORT INFORMATION
  Report Type: Spontaneous
  Country: FR (occurrence: FR)
  Receive Date: 20140825
  Receipt Date: 20140912
  Transmission Date: 20150326
  Serious: Yes (Other)
  Sender: FDA-Public Use
  Company Number: FR-MERCK-1408FRA011374

PATIENT
  Age: 66 Year
  Sex: Female
  Weight: 59 kg

DRUGS (14)
  1. REBETOL [Suspect]
     Active Substance: RIBAVIRIN
     Dosage: 200 MG, BID
     Route: 048
     Dates: start: 20110428, end: 20110519
  2. SPECIAFOLDINE [Concomitant]
     Active Substance: FOLIC ACID
     Dosage: 5 MG, QD
     Dates: start: 20110324
  3. REBETOL [Suspect]
     Active Substance: RIBAVIRIN
     Dosage: 600 MG, QD
     Route: 048
     Dates: start: 20110713, end: 20110808
  4. DEXERYL CREAM [Concomitant]
     Active Substance: GLYCERIN\PARAFFIN
     Indication: DRY SKIN PROPHYLAXIS
     Dosage: 1 APPLICATION WHEN NEEDED
     Dates: start: 20110324
  5. VIRAFERONPEG [Suspect]
     Active Substance: PEGINTERFERON ALFA-2B
     Dosage: 64 MICROGRAM, QW
     Route: 058
     Dates: start: 20110808, end: 20111208
  6. REBETOL [Suspect]
     Active Substance: RIBAVIRIN
     Dosage: 400 MG, BID
     Route: 048
     Dates: start: 20110520, end: 20110701
  7. REBETOL [Suspect]
     Active Substance: RIBAVIRIN
     Dosage: 200 MG, BID
     Route: 048
     Dates: start: 20110702, end: 20110712
  8. ACETAMINOPHEN. [Concomitant]
     Active Substance: ACETAMINOPHEN
     Indication: ANTIVIRAL PROPHYLAXIS
     Dosage: 1 G, TID
     Dates: start: 20110324
  9. VIRAFERONPEG [Suspect]
     Active Substance: PEGINTERFERON ALFA-2B
     Indication: HEPATITIS C
     Dosage: 80 MICROGRAM, QW
     Route: 058
     Dates: start: 20110324
  10. REBETOL [Suspect]
     Active Substance: RIBAVIRIN
     Indication: HEPATITIS C
     Dosage: 400 MG, BID
     Route: 048
     Dates: start: 20110324
  11. REBETOL [Suspect]
     Active Substance: RIBAVIRIN
     Dosage: 200 MG, BID
     Route: 048
     Dates: start: 20110809, end: 20111208
  12. REBETOL [Suspect]
     Active Substance: RIBAVIRIN
     Dosage: UNK
  13. FUMAFER [Concomitant]
     Active Substance: FERROUS FUMARATE
     Dosage: 1 PER DAY
     Dates: start: 20110324
  14. VICTRELIS [Suspect]
     Active Substance: BOCEPREVIR
     Indication: HEPATITIS C
     Dosage: UNK
     Route: 048
     Dates: start: 20110422, end: 20110909

REACTIONS (2)
  - Neutropenia [Recovering/Resolving]
  - Neutropenia [Recovering/Resolving]

NARRATIVE: CASE EVENT DATE: 20110404
